FAERS Safety Report 18733149 (Version 1)
Quarter: 2021Q1

REPORT INFORMATION
  Report Type: Report from Study
  Country: GB (occurrence: GB)
  Receive Date: 20210112
  Receipt Date: 20210112
  Transmission Date: 20210419
  Serious: Yes (Hospitalization, Other)
  Sender: FDA-Public Use
  Company Number: GB-JNJFOC-20191222055

PATIENT
  Age: 52 Year
  Sex: Female
  Weight: 84.4 kg

DRUGS (23)
  1. STELARA [Suspect]
     Active Substance: USTEKINUMAB
     Indication: PSORIASIS
     Route: 058
     Dates: start: 20170127, end: 20200507
  2. CLARITHROMYCIN. [Concomitant]
     Active Substance: CLARITHROMYCIN
     Dates: start: 20200427, end: 20200502
  3. AMITRIPTYLINE [Concomitant]
     Active Substance: AMITRIPTYLINE
     Dates: start: 20030701
  4. TRAMADOL. [Concomitant]
     Active Substance: TRAMADOL
     Dates: start: 20030701, end: 20191001
  5. LANTUS [Concomitant]
     Active Substance: INSULIN GLARGINE
     Dates: start: 20190301
  6. DOXYCYCLINE. [Concomitant]
     Active Substance: DOXYCYCLINE
     Dates: start: 20200506, end: 20200513
  7. BISACODYL. [Concomitant]
     Active Substance: BISACODYL
     Dates: start: 20150701
  8. MICROGYNON                         /00022701/ [Concomitant]
     Active Substance: ETHINYL ESTRADIOL\LEVONORGESTREL ACETATE
     Dates: start: 20170819
  9. ASPRIN [Concomitant]
     Active Substance: ASPIRIN
     Dates: start: 20180601
  10. SIRDUPLA [Concomitant]
     Active Substance: FLUTICASONE PROPIONATE\SALMETEROL XINAFOATE
     Dates: start: 20170106
  11. SALAMOL EASI?BREATHE [Concomitant]
     Active Substance: ALBUTEROL
     Dates: start: 20020701
  12. SOLIFENACIN SUCCINATE. [Concomitant]
     Active Substance: SOLIFENACIN SUCCINATE
     Dates: start: 20200129
  13. MORPHINE [Concomitant]
     Active Substance: MORPHINE
     Dates: start: 20030701, end: 20191001
  14. PIZOTIFEN [Concomitant]
     Active Substance: PIZOTYLINE
     Dates: start: 20130701
  15. PREGABALIN. [Concomitant]
     Active Substance: PREGABALIN
     Dates: start: 20191001
  16. FERROUS SULFATE. [Concomitant]
     Active Substance: FERROUS SULFATE
     Dates: start: 20181201
  17. SUMATRIPTAN. [Concomitant]
     Active Substance: SUMATRIPTAN
     Dates: start: 20020701
  18. WARFARIN [Concomitant]
     Active Substance: WARFARIN
     Dates: start: 20190101, end: 20190115
  19. CANDESARTAN. [Concomitant]
     Active Substance: CANDESARTAN
     Dates: start: 20160701
  20. CLOPIDOGREL [Concomitant]
     Active Substance: CLOPIDOGREL BISULFATE
     Dates: start: 20180601
  21. APIXABAN [Concomitant]
     Active Substance: APIXABAN
     Dates: start: 20180314, end: 20180822
  22. DOCETAXEL. [Concomitant]
     Active Substance: DOCETAXEL
     Dates: start: 20160701
  23. ATORVASTATIN [Concomitant]
     Active Substance: ATORVASTATIN
     Dates: start: 20160701

REACTIONS (2)
  - COVID-19 [Recovered/Resolved]
  - Peripheral ischaemia [Recovered/Resolved]

NARRATIVE: CASE EVENT DATE: 20190608
